FAERS Safety Report 4669178-9 (Version None)
Quarter: 2005Q2

REPORT INFORMATION
  Report Type: 
  Country: None (occurrence: None)
  Receive Date: 20050519
  Receipt Date: 20050509
  Transmission Date: 20051028
  Serious: Yes (Hospitalization)
  Sender: FDA-Public Use
  Company Number: 11077

PATIENT
  Age: 24 Month
  Sex: Female

DRUGS (3)
  1. PAMIDRONIC ACID [Suspect]
     Indication: OSTEOGENESIS IMPERFECTA
     Dosage: 1 MG/KG MONTHLY; IV
     Route: 042
     Dates: start: 20031001
  2. CALCIUM WITH VITAMIN D [Concomitant]
  3. CALCIUM GLUCONATE [Concomitant]

REACTIONS (4)
  - ARRHYTHMIA [None]
  - INFLUENZA LIKE ILLNESS [None]
  - PYREXIA [None]
  - TACHYCARDIA [None]
